FAERS Safety Report 6143118-8 (Version None)
Quarter: 2009Q2

REPORT INFORMATION
  Report Type: 
  Country: None (occurrence: None)
  Receive Date: 20090403
  Receipt Date: 20090327
  Transmission Date: 20091009
  Serious: Yes (Other)
  Sender: FDA-Public Use
  Company Number: FR-JNJFOC-20090307015

PATIENT
  Age: 57 Year
  Sex: Female

DRUGS (4)
  1. RISPERDAL [Suspect]
     Route: 065
  2. RISPERDAL [Suspect]
     Indication: PSYCHOTIC DISORDER
     Route: 065
  3. HERCEPTINE [Concomitant]
     Indication: BREAST CANCER
     Route: 065
  4. TAXOTERE [Concomitant]
     Indication: BREAST CANCER
     Route: 065

REACTIONS (2)
  - TRANSIENT ISCHAEMIC ATTACK [None]
  - TREATMENT NONCOMPLIANCE [None]
